FAERS Safety Report 7961005-7 (Version None)
Quarter: 2011Q4

REPORT INFORMATION
  Report Type: 
  Country: None (occurrence: None)
  Receive Date: 20111207
  Receipt Date: 20111202
  Transmission Date: 20120403
  Serious: No
  Sender: FDA-Public Use
  Company Number: US-PFIZER INC-2011294998

PATIENT
  Sex: Male

DRUGS (2)
  1. VIAGRA [Suspect]
     Dosage: UNK
  2. AMLODIPINE BESYLATE [Suspect]
     Dosage: 50 MG, UNK

REACTIONS (2)
  - CHILLS [None]
  - TREMOR [None]
